FAERS Safety Report 12932709 (Version 2)
Quarter: 2016Q4

REPORT INFORMATION
  Report Type: Report from Study
  Country: BR (occurrence: BR)
  Receive Date: 20161111
  Receipt Date: 20161208
  Transmission Date: 20170207
  Serious: Yes (Hospitalization, Other)
  Sender: FDA-Public Use
  Company Number: PHHY2016BR153808

PATIENT
  Sex: Female

DRUGS (2)
  1. DIOVAN AMLO FIX [Suspect]
     Active Substance: AMLODIPINE\VALSARTAN
     Indication: PRODUCT USED FOR UNKNOWN INDICATION
     Dosage: 1 DF(AMLODIPINE UNK, VALSARTAN 160 MG), UNK (USED FOR 10 YEARS)
     Route: 048
     Dates: start: 2006
  2. DIOVAN [Suspect]
     Active Substance: VALSARTAN
     Indication: PRODUCT USED FOR UNKNOWN INDICATION
     Dosage: 160 MG, UNK
     Route: 065

REACTIONS (9)
  - Visual impairment [Unknown]
  - Malaise [Not Recovered/Not Resolved]
  - Arrhythmia [Unknown]
  - Hypoacusis [Unknown]
  - General physical health deterioration [Unknown]
  - Peripheral swelling [Unknown]
  - Circulatory collapse [Unknown]
  - Pain in extremity [Unknown]
  - Pulmonary hypertension [Unknown]
